FAERS Safety Report 8594322-0 (Version None)
Quarter: 2012Q3

REPORT INFORMATION
  Report Type: 
  Country: None (occurrence: None)
  Receive Date: 20120815
  Receipt Date: 20120802
  Transmission Date: 20120928
  Serious: No
  Sender: FDA-Public Use
  Company Number: US-BIOGENIDEC-2012BI024976

PATIENT
  Age: 71 Year
  Sex: Male

DRUGS (1)
  1. TYSABRI [Suspect]
     Indication: MULTIPLE SCLEROSIS
     Route: 042
     Dates: start: 20120705

REACTIONS (6)
  - RASH [None]
  - DIZZINESS [None]
  - HALLUCINATION [None]
  - DYSPNOEA [None]
  - HYPOTENSION [None]
  - DISORIENTATION [None]
